FAERS Safety Report 24275575 (Version 2)
Quarter: 2024Q3

REPORT INFORMATION
  Report Type: Spontaneous
  Country: US (occurrence: US)
  Receive Date: 20240903
  Receipt Date: 20240930
  Transmission Date: 20241017
  Serious: No
  Sender: TOLMAR
  Company Number: US-TOLMAR, INC.-24US051515

PATIENT
  Sex: Male

DRUGS (1)
  1. ELIGARD [Suspect]
     Active Substance: LEUPROLIDE ACETATE
     Indication: Prostate cancer
     Dosage: 22.5 MILLIGRAM, Q 3 MONTH
     Route: 058
     Dates: start: 2024

REACTIONS (3)
  - Intercepted product preparation error [Unknown]
  - Product packaging quantity issue [Unknown]
  - Device leakage [Unknown]

NARRATIVE: CASE EVENT DATE: 20240101
